FAERS Safety Report 6170534-0 (Version None)
Quarter: 2009Q2

REPORT INFORMATION
  Report Type: 
  Country: None (occurrence: None)
  Receive Date: 20090428
  Receipt Date: 20090427
  Transmission Date: 20091009
  Serious: Yes (Hospitalization, Other)
  Sender: FDA-Public Use
  Company Number: CA-PFIZER INC-2009188346

PATIENT

DRUGS (17)
  1. NAPROXEN [Suspect]
     Indication: OSTEOARTHRITIS
     Dosage: HIGH DOSE, TID; OD
     Route: 048
     Dates: start: 20080710
  2. BLINDED *PLACEBO [Suspect]
     Indication: OSTEOARTHRITIS
     Dosage: HIGH DOSE, TID; OD
     Route: 048
     Dates: start: 20080710
  3. BLINDED CELECOXIB [Suspect]
     Indication: OSTEOARTHRITIS
     Dosage: HIGH DOSE, TID; OD
     Route: 048
     Dates: start: 20080710
  4. IBUPROFEN [Suspect]
     Indication: OSTEOARTHRITIS
     Dosage: HIGH DOSE, TID; OD
     Route: 048
     Dates: start: 20080710
  5. NAPROXEN [Suspect]
     Dosage: HIGH DOSE, TID; OD
     Route: 048
     Dates: start: 20080710
  6. NEXIUM [Concomitant]
     Dosage: 40 MG, 1X/DAY
     Route: 048
     Dates: start: 20080710
  7. NOVOMIX [Concomitant]
     Dosage: UNK
     Dates: start: 20070419
  8. PAROXETINE [Concomitant]
     Dosage: UNK
     Route: 048
     Dates: start: 20010101
  9. METFORMIN [Concomitant]
     Dosage: UNK
     Route: 048
     Dates: start: 20040903
  10. TEVETEN [Concomitant]
     Dosage: UNK
     Route: 048
     Dates: start: 20051122, end: 20090318
  11. TEVETEN HCT [Concomitant]
     Dosage: UNK
     Route: 048
     Dates: start: 20080729, end: 20090318
  12. FLOMOX [Concomitant]
     Dosage: UNK
     Route: 048
     Dates: start: 20090318
  13. AVODART [Concomitant]
     Dosage: UNK
     Route: 048
     Dates: start: 20090318
  14. XATRAL [Concomitant]
     Dosage: UNK
     Route: 048
     Dates: start: 20080430, end: 20090317
  15. PROSCAR [Concomitant]
     Dosage: UNK
     Route: 048
     Dates: start: 20080430, end: 20090317
  16. SYMBICORT [Concomitant]
     Dosage: UNK
     Dates: start: 20080129
  17. ATACAND [Concomitant]
     Dosage: UNK
     Route: 048
     Dates: start: 20090319

REACTIONS (8)
  - ERYTHEMA [None]
  - IMPAIRED HEALING [None]
  - LOCAL SWELLING [None]
  - PERITONEAL DISORDER [None]
  - SEROMA [None]
  - STRANGULATED HERNIA REPAIR [None]
  - UMBILICAL HERNIA [None]
  - WOUND NECROSIS [None]
